FAERS Safety Report 6705036-3 (Version None)
Quarter: 2010Q2

REPORT INFORMATION
  Report Type: 
  Country: None (occurrence: None)
  Receive Date: 20100430
  Receipt Date: 20100426
  Transmission Date: 20101027
  Serious: Yes (Other)
  Sender: FDA-Public Use
  Company Number: B0646400A

PATIENT
  Sex: Female
  Weight: 40 kg

DRUGS (3)
  1. TYKERB [Suspect]
     Indication: BREAST CANCER
     Dosage: 1250MG PER DAY
     Route: 048
     Dates: start: 20090709, end: 20090715
  2. XELODA [Suspect]
     Dosage: 1800MG PER DAY
     Dates: start: 20090709, end: 20090715
  3. PYDOXAL [Concomitant]
     Indication: PROPHYLAXIS
     Route: 048
     Dates: start: 20090709, end: 20090715

REACTIONS (2)
  - ERYTHEMA MULTIFORME [None]
  - SKIN EXFOLIATION [None]
